FAERS Safety Report 21644430 (Version 2)
Quarter: 2022Q4

REPORT INFORMATION
  Report Type: Report from Study
  Country: NL (occurrence: NL)
  Receive Date: 20221125
  Receipt Date: 20221205
  Transmission Date: 20230112
  Serious: Yes (Death)
  Sender: FDA-Public Use
  Company Number: NL-002147023-NVSC2022NL266006

PATIENT
  Age: 93 Year
  Sex: Female
  Weight: 45 kg

DRUGS (2)
  1. ACLASTA [Suspect]
     Active Substance: ZOLEDRONIC ACID
     Indication: Osteoporosis postmenopausal
     Dosage: 1 DOSAGE FORM, Q12MO
     Route: 065
  2. ACLASTA [Suspect]
     Active Substance: ZOLEDRONIC ACID
     Dosage: 5 MG
     Route: 042
     Dates: start: 2019

REACTIONS (1)
  - Death [Fatal]

NARRATIVE: CASE EVENT DATE: 20221006
